FAERS Safety Report 10083342 (Version 1)
Quarter: 2014Q2

REPORT INFORMATION
  Report Type: Spontaneous
  Country: US (occurrence: US)
  Receive Date: 20140417
  Receipt Date: 20140417
  Transmission Date: 20141212
  Serious: Yes (Other)
  Sender: FDA-Public Use
  Company Number: US-ROCHE-1384796

PATIENT
  Age: 26 Year
  Sex: Female

DRUGS (7)
  1. XOLAIR [Suspect]
     Indication: PRODUCT USED FOR UNKNOWN INDICATION
     Dosage: ON XOLAIR FOR ABOUT A YEAR
     Route: 065
  2. ZYRTEC [Concomitant]
  3. SINGULAIR [Concomitant]
  4. ZETONNA [Concomitant]
     Route: 065
  5. PULMICORT [Concomitant]
  6. ACIPHEX [Concomitant]
  7. ALIGN [Concomitant]

REACTIONS (3)
  - Urticaria [Unknown]
  - Dyspnoea [Unknown]
  - Medication error [Unknown]
